FAERS Safety Report 14173684 (Version 1)
Quarter: 2017Q4

REPORT INFORMATION
  Report Type: Spontaneous
  Country: RS (occurrence: RS)
  Receive Date: 20171109
  Receipt Date: 20171109
  Transmission Date: 20180321
  Serious: Yes (Hospitalization, Other)
  Sender: FDA-Public Use
  Company Number: RS-ACCORD-060719

PATIENT
  Age: 3 Year
  Sex: Female

DRUGS (2)
  1. CARBOPLATIN. [Suspect]
     Active Substance: CARBOPLATIN
     Indication: EWING^S SARCOMA
  2. TOPOTECAN [Suspect]
     Active Substance: TOPOTECAN HYDROCHLORIDE
     Indication: EWING^S SARCOMA

REACTIONS (5)
  - Bone marrow failure [Unknown]
  - Bronchopulmonary aspergillosis [Unknown]
  - Disseminated intravascular coagulation [Unknown]
  - Cardiac failure [Recovering/Resolving]
  - Electrolyte imbalance [Recovering/Resolving]
